FAERS Safety Report 14547209 (Version 2)
Quarter: 2020Q2

REPORT INFORMATION
  Report Type: Report from Study
  Country: CA (occurrence: CA)
  Receive Date: 20180219
  Receipt Date: 20200527
  Transmission Date: 20200713
  Serious: Yes (Other)
  Sender: FDA-Public Use
  Company Number: CA-JNJFOC-20180221458

PATIENT
  Age: 57 Year
  Sex: Male
  Weight: 63.5 kg

DRUGS (1)
  1. REMICADE [Suspect]
     Active Substance: INFLIXIMAB
     Indication: CROHN^S DISEASE
     Route: 042
     Dates: start: 20070720, end: 20180122

REACTIONS (2)
  - Drug ineffective [Unknown]
  - Lymphoma [Unknown]

NARRATIVE: CASE EVENT DATE: 20180213
